FAERS Safety Report 6201988-9 (Version None)
Quarter: 2009Q2

REPORT INFORMATION
  Report Type: 
  Country: None (occurrence: None)
  Receive Date: 20090526
  Receipt Date: 20090515
  Transmission Date: 20091009
  Serious: Yes (Hospitalization)
  Sender: FDA-Public Use
  Company Number: A0785645A

PATIENT
  Sex: Male

DRUGS (1)
  1. ELTROMBOPAG [Suspect]
     Indication: AUTOIMMUNE THROMBOCYTOPENIA
     Dosage: 50MGD PER DAY
     Route: 048
     Dates: start: 20090427

REACTIONS (2)
  - PETECHIAE [None]
  - THROMBOCYTOPENIA [None]
